FAERS Safety Report 10927119 (Version 1)
Quarter: 2015Q1

REPORT INFORMATION
  Report Type: Spontaneous
  Country: US (occurrence: None)
  Receive Date: 20150316
  Receipt Date: 20150316
  Transmission Date: 20150721
  Serious: Yes (Hospitalization)
  Sender: FDA-Public Use
  Company Number: FK201501147

PATIENT
  Sex: Male

DRUGS (1)
  1. GENTAMICIN (MANUFACTURER UNKNOWN) (GENTAMICIN) (GENTAMICIN) [Suspect]
     Active Substance: GENTAMICIN
     Indication: ANTIBIOTIC THERAPY
     Dosage: NOT OTHERWISE SPECIFIED
     Route: 042

REACTIONS (1)
  - Acute kidney injury [None]
